FAERS Safety Report 24560700 (Version 1)
Quarter: 2024Q4

REPORT INFORMATION
  Report Type: Spontaneous
  Country: GB (occurrence: GB)
  Receive Date: 20241029
  Receipt Date: 20241029
  Transmission Date: 20250115
  Serious: Yes (Other)
  Sender: MYLAN
  Company Number: GB-MYLANLABS-2024M1097729

PATIENT
  Age: 86 Year
  Sex: Female
  Weight: 54 kg

DRUGS (1)
  1. APIXABAN [Suspect]
     Active Substance: APIXABAN
     Indication: Cerebrovascular accident prophylaxis
     Dosage: 5 MILLIGRAM, BID, SHE SHOULD HAVE BEEN RECEIVING A REDUCED??..
     Route: 048

REACTIONS (3)
  - Renal impairment [Unknown]
  - Incorrect dose administered [Unknown]
  - Anticoagulation drug level increased [Unknown]
